FAERS Safety Report 25484215 (Version 3)
Quarter: 2025Q3

REPORT INFORMATION
  Report Type: Spontaneous
  Country: US (occurrence: US)
  Receive Date: 20250626
  Receipt Date: 20250708
  Transmission Date: 20251020
  Serious: No
  Sender: SANOFI AVENTIS
  Company Number: US-SA-2025SA165493

PATIENT
  Age: 61 Year
  Sex: Male
  Weight: 88.39 kg

DRUGS (9)
  1. DUPIXENT [Suspect]
     Active Substance: DUPILUMAB
     Indication: Dermatitis atopic
     Route: 058
     Dates: start: 20250606, end: 20250606
  2. DUPIXENT [Suspect]
     Active Substance: DUPILUMAB
     Dosage: 300 MG, QOW
     Route: 058
     Dates: start: 20250620
  3. OMEPRAZOLE [Concomitant]
     Active Substance: OMEPRAZOLE
  4. HYDROCORTISONE VALERATE [Concomitant]
     Active Substance: HYDROCORTISONE VALERATE
  5. DESOXIMETASONE [Concomitant]
     Active Substance: DESOXIMETASONE
  6. ROSUVASTATIN CALCIUM [Concomitant]
     Active Substance: ROSUVASTATIN CALCIUM
  7. METFORMIN [Concomitant]
     Active Substance: METFORMIN HYDROCHLORIDE
  8. HYDROXYZINE [Concomitant]
     Active Substance: HYDROXYZINE HYDROCHLORIDE
  9. TACROLIMUS [Concomitant]
     Active Substance: TACROLIMUS

REACTIONS (6)
  - Fatigue [Unknown]
  - Dry eye [Unknown]
  - Neck pain [Unknown]
  - Condition aggravated [Unknown]
  - Arthralgia [Unknown]
  - Electric shock sensation [Unknown]

NARRATIVE: CASE EVENT DATE: 20250101
